FAERS Safety Report 16138943 (Version 2)
Quarter: 2019Q2

REPORT INFORMATION
  Report Type: Spontaneous
  Country: US (occurrence: US)
  Receive Date: 20190401
  Receipt Date: 20190510
  Transmission Date: 20190711
  Serious: No
  Sender: FDA-Public Use
  Company Number: US-ASTRAZENECA-2019SE37299

PATIENT
  Sex: Female
  Weight: 47.6 kg

DRUGS (2)
  1. ATROVENT [Concomitant]
     Active Substance: IPRATROPIUM BROMIDE
  2. BEVESPI AEROSPHERE [Suspect]
     Active Substance: FORMOTEROL FUMARATE\GLYCOPYRROLATE
     Dosage: 9/4.8 MCG, 2 PUFFS TWICE A DAY
     Route: 055

REACTIONS (5)
  - Fatigue [Unknown]
  - Device malfunction [Unknown]
  - Irritability [Unknown]
  - Drug ineffective [Unknown]
  - Intentional product use issue [Unknown]
